FAERS Safety Report 8984221 (Version 1)
Quarter: 2012Q4

REPORT INFORMATION
  Report Type: Spontaneous
  Country: US (occurrence: None)
  Receive Date: 20121214
  Receipt Date: 20121214
  Transmission Date: 20130627
  Serious: Yes (Other)
  Sender: FDA-Public Use
  Company Number: US-SEPTODONT-201200858

PATIENT
  Age: 17 Year
  Sex: Female

DRUGS (2)
  1. ORAVERSE [Suspect]
     Indication: LOCAL ANAESTHESIA
     Dosage: 1 cartridge
     Route: 004
     Dates: start: 201205
  2. XYLOCAINE [Suspect]
     Indication: ANESTHESIA REVERSAL
     Dates: start: 201205

REACTIONS (2)
  - Injection site pain [None]
  - VIIth nerve paralysis [None]
